FAERS Safety Report 22282505 (Version 1)
Quarter: 2023Q2

REPORT INFORMATION
  Report Type: Spontaneous
  Country: RO (occurrence: RO)
  Receive Date: 20230504
  Receipt Date: 20230504
  Transmission Date: 20230721
  Serious: Yes (Hospitalization)
  Sender: FDA-Public Use
  Company Number: RO-STRIDES ARCOLAB LIMITED-2023SP006268

PATIENT
  Age: 63 Year
  Sex: Female

DRUGS (7)
  1. DIAZEPAM [Suspect]
     Active Substance: DIAZEPAM
     Indication: Product used for unknown indication
     Dosage: UNK (TABLET)
     Route: 048
  2. CHLORZOXAZONE [Suspect]
     Active Substance: CHLORZOXAZONE
     Indication: Product used for unknown indication
     Dosage: UNK (TABLET)
     Route: 048
  3. TRAMADOL HYDROCHLORIDE AND ACETAMINOPHEN [Suspect]
     Active Substance: ACETAMINOPHEN\TRAMADOL HYDROCHLORIDE
     Indication: Product used for unknown indication
     Dosage: UNK (TABLET)
     Route: 048
  4. METOPROLOL [Suspect]
     Active Substance: METOPROLOL
     Indication: Product used for unknown indication
     Dosage: 12 GRAM (TABLET)
     Route: 048
  5. DIGOXIN [Suspect]
     Active Substance: DIGOXIN
     Indication: Product used for unknown indication
     Dosage: 7.5 MILLIGRAM (TABLET)
     Route: 048
  6. EPINEPHRINE [Suspect]
     Active Substance: EPINEPHRINE
     Indication: Hypotension
     Dosage: UNK (0.05-0.25 MICROG/KG/MIN) (INFUSION) APPROXIMATELY 8 HOURS
     Route: 042
  7. EPINEPHRINE [Suspect]
     Active Substance: EPINEPHRINE
     Dosage: UNK (0.25 ML/KG/MIN INFUSION)
     Route: 042

REACTIONS (16)
  - Suicide attempt [Unknown]
  - Sinus bradycardia [Recovered/Resolved]
  - Coma scale abnormal [Recovered/Resolved]
  - Electrocardiogram ST segment elevation [Recovered/Resolved]
  - Blood lactic acid increased [Recovered/Resolved]
  - Sinus rhythm [Recovered/Resolved]
  - Electrocardiogram ST segment depression [Recovered/Resolved]
  - Electrocardiogram QT interval normal [Recovered/Resolved]
  - Ejection fraction [Recovered/Resolved]
  - Drug level increased [Recovered/Resolved]
  - Stress cardiomyopathy [Recovered/Resolved]
  - Haemodynamic instability [Recovered/Resolved]
  - Hypokinesia [Recovered/Resolved]
  - Chest pain [Recovered/Resolved]
  - Hypotension [Recovered/Resolved]
  - Poisoning [Unknown]
